FAERS Safety Report 12011741 (Version 1)
Quarter: 2016Q1

REPORT INFORMATION
  Report Type: Report from Study
  Country: US (occurrence: US)
  Receive Date: 20160205
  Receipt Date: 20160205
  Transmission Date: 20160526
  Serious: Yes (Death, Hospitalization)
  Sender: FDA-Public Use
  Company Number: US-JNJFOC-20160108348

PATIENT
  Sex: Female

DRUGS (16)
  1. ALLOPURINOL. [Concomitant]
     Active Substance: ALLOPURINOL
  2. KLOR-CON [Concomitant]
     Active Substance: POTASSIUM CHLORIDE
  3. GLICLAZIDE [Concomitant]
     Active Substance: GLICLAZIDE
  4. LEXAPRO [Concomitant]
     Active Substance: ESCITALOPRAM OXALATE
  5. AMITRIPTYLINE [Concomitant]
     Active Substance: AMITRIPTYLINE
  6. COREG [Concomitant]
     Active Substance: CARVEDILOL
  7. ENABLEX [Concomitant]
     Active Substance: DARIFENACIN HYDROBROMIDE
  8. INSULIN [Concomitant]
     Active Substance: INSULIN NOS
     Dosage: 100 UNITS/ML
  9. FUROSEMIDE. [Concomitant]
     Active Substance: FUROSEMIDE
  10. ACETAMINOPHEN W/HYDROCODONE BITARTRATE [Concomitant]
     Active Substance: ACETAMINOPHEN\HYDROCODONE BITARTRATE
     Dosage: 5/325
  11. GABAPENTIN. [Concomitant]
     Active Substance: GABAPENTIN
  12. IMBRUVICA [Suspect]
     Active Substance: IBRUTINIB
     Indication: CHRONIC LYMPHOCYTIC LEUKAEMIA
     Route: 048
     Dates: start: 20140624
  13. PREDNISONE. [Concomitant]
     Active Substance: PREDNISONE
  14. FISH OIL [Concomitant]
     Active Substance: FISH OIL
  15. ISOSORBIDE MONONITRATE. [Concomitant]
     Active Substance: ISOSORBIDE MONONITRATE
  16. METFORMIN [Concomitant]
     Active Substance: METFORMIN HYDROCHLORIDE

REACTIONS (3)
  - Sepsis syndrome [Fatal]
  - Aspiration [Unknown]
  - Colitis ischaemic [Unknown]
